FAERS Safety Report 14031385 (Version 1)
Quarter: 2017Q4

REPORT INFORMATION
  Report Type: Spontaneous
  Country: FR (occurrence: FR)
  Receive Date: 20171003
  Receipt Date: 20171003
  Transmission Date: 20180321
  Serious: Yes (Other)
  Sender: FDA-Public Use
  Company Number: FR-MERCK KGAA-2028404

PATIENT
  Age: 72 Year
  Sex: Female

DRUGS (2)
  1. PREVISCAN (FLUINDIONE) [Concomitant]
     Active Substance: FLUINDIONE
  2. NOVOTHYROX [Suspect]
     Active Substance: LEVOTHYROXINE SODIUM
     Indication: PRODUCT USED FOR UNKNOWN INDICATION
     Dates: start: 2017

REACTIONS (12)
  - Syncope [None]
  - Arthralgia [None]
  - Malaise [None]
  - Poor quality sleep [None]
  - Dizziness [None]
  - Arrhythmia [None]
  - Memory impairment [None]
  - Headache [None]
  - Abdominal distension [Recovered/Resolved]
  - Blood thyroid stimulating hormone abnormal [None]
  - Gastrointestinal disorder [None]
  - Fatigue [None]

NARRATIVE: CASE EVENT DATE: 2017
